FAERS Safety Report 17236520 (Version 1)
Quarter: 2020Q1

REPORT INFORMATION
  Report Type: Spontaneous
  Country: AU (occurrence: AU)
  Receive Date: 20200106
  Receipt Date: 20200106
  Transmission Date: 20200409
  Serious: Yes (Other)
  Sender: FDA-Public Use
  Company Number: AU-TEVA-2019-AU-1162906

PATIENT
  Age: 62 Year
  Sex: Male

DRUGS (1)
  1. ATORVASTATIN [Suspect]
     Active Substance: ATORVASTATIN
     Indication: CORONARY ARTERY DISEASE
     Route: 065
     Dates: end: 200911

REACTIONS (2)
  - Immune-mediated myositis [Recovering/Resolving]
  - Loss of personal independence in daily activities [Recovering/Resolving]
